FAERS Safety Report 18160457 (Version 2)
Quarter: 2020Q3

REPORT INFORMATION
  Report Type: Spontaneous
  Country: CA (occurrence: CA)
  Receive Date: 20200817
  Receipt Date: 20200821
  Transmission Date: 20201103
  Serious: Yes (Hospitalization, Other)
  Sender: FDA-Public Use
  Company Number: CA-PFIZER INC-2020277130

PATIENT
  Age: 57 Year
  Sex: Male

DRUGS (5)
  1. METHYLPREDNISOLONE. [Concomitant]
     Active Substance: METHYLPREDNISOLONE
     Dosage: 125 MG, 1X/DAY
     Route: 042
  2. TYLENOL [Concomitant]
     Active Substance: ACETAMINOPHEN
     Dosage: UNK
  3. METHYLPREDNISOLONE. [Concomitant]
     Active Substance: METHYLPREDNISOLONE
     Dosage: 40 MG, 2X/DAY
     Route: 042
     Dates: start: 202008
  4. XELJANZ [Suspect]
     Active Substance: TOFACITINIB CITRATE
     Indication: COLITIS ULCERATIVE
     Dosage: 10 MG, 2X/DAY
     Route: 048
     Dates: start: 20200718, end: 202008
  5. HYDROMORPHONE [Concomitant]
     Active Substance: HYDROMORPHONE
     Indication: PAIN
     Dosage: UNK

REACTIONS (12)
  - Anxiety [Unknown]
  - Haematochezia [Unknown]
  - Fungal infection [Unknown]
  - Colitis ulcerative [Unknown]
  - Asthenia [Unknown]
  - Chills [Unknown]
  - Clostridium difficile infection [Unknown]
  - Drug ineffective [Not Recovered/Not Resolved]
  - Headache [Unknown]
  - Nausea [Unknown]
  - Candida infection [Unknown]
  - Dysuria [Unknown]
